FAERS Safety Report 24265150 (Version 2)
Quarter: 2024Q3

REPORT INFORMATION
  Report Type: Spontaneous
  Country: US (occurrence: US)
  Receive Date: 20240829
  Receipt Date: 20240927
  Transmission Date: 20241017
  Serious: No
  Sender: BRISTOL MYERS SQUIBB
  Company Number: US-BRISTOL-MYERS SQUIBB COMPANY-2024-137311

PATIENT
  Age: 54 Year
  Sex: Male

DRUGS (2)
  1. CAMZYOS [Interacting]
     Active Substance: MAVACAMTEN
     Indication: Product used for unknown indication
     Route: 048
  2. OMEPRAZOLE [Interacting]
     Active Substance: OMEPRAZOLE
     Indication: Product used for unknown indication

REACTIONS (3)
  - Labelled drug-drug interaction issue [Unknown]
  - Dyspepsia [Unknown]
  - Product use issue [Unknown]

NARRATIVE: CASE EVENT DATE: 20240924
